FAERS Safety Report 17720368 (Version 1)
Quarter: 2020Q2

REPORT INFORMATION
  Report Type: Spontaneous
  Country: US (occurrence: US)
  Receive Date: 20200428
  Receipt Date: 20200428
  Transmission Date: 20200714
  Serious: No
  Sender: FDA-Public Use
  Company Number: US-009507513-2004USA007940

PATIENT
  Sex: Male

DRUGS (3)
  1. DULERA [Suspect]
     Active Substance: FORMOTEROL FUMARATE DIHYDRATE\MOMETASONE FUROATE
     Indication: ASTHMA
     Dosage: 100/5 MCG, STARTED AT 4 TIMES A DAY FOR 2 DAYS
     Route: 055
     Dates: start: 2016, end: 2016
  2. LUMIGAN [Concomitant]
     Active Substance: BIMATOPROST
  3. DULERA [Suspect]
     Active Substance: FORMOTEROL FUMARATE DIHYDRATE\MOMETASONE FUROATE
     Dosage: 100/5 MCG, REDUCED TO TIMES A DAY ON DAY 4
     Dates: start: 2016, end: 2019

REACTIONS (6)
  - Dizziness [Recovered/Resolved]
  - Incorrect dose administered [Unknown]
  - Product dose omission [Unknown]
  - Product dose omission [Unknown]
  - Gait disturbance [Recovered/Resolved]
  - Vertigo [Recovered/Resolved]

NARRATIVE: CASE EVENT DATE: 2016
